FAERS Safety Report 22359321 (Version 2)
Quarter: 2023Q2

REPORT INFORMATION
  Report Type: Spontaneous
  Country: US (occurrence: US)
  Receive Date: 20230524
  Receipt Date: 20230530
  Transmission Date: 20230721
  Serious: Yes (Other)
  Sender: FDA-Public Use
  Company Number: US-BRISTOL-MYERS SQUIBB COMPANY-2023-070432

PATIENT
  Age: 77 Year
  Sex: Female

DRUGS (1)
  1. REVLIMID [Suspect]
     Active Substance: LENALIDOMIDE
     Indication: Plasma cell myeloma
     Dosage: FREQUENCY: 9?FREQUENCY: TAKE 1 CAPSULE BY MOUTH 3 TIMES WEEKLY AFTER DIALYSIS ON DIALYSIS
     Route: 048
     Dates: start: 20230206

REACTIONS (10)
  - Drug ineffective [Unknown]
  - Renal disorder [Unknown]
  - Influenza [Recovered/Resolved]
  - Diarrhoea [Recovered/Resolved]
  - Vomiting [Recovered/Resolved]
  - Intentional product use issue [Unknown]
  - Pruritus [Unknown]
  - Dehydration [Unknown]
  - Pain in extremity [Unknown]
  - Fatigue [Unknown]
